FAERS Safety Report 8832663 (Version 1)
Quarter: 2012Q4

REPORT INFORMATION
  Report Type: Spontaneous
  Country: US (occurrence: None)
  Receive Date: 20121010
  Receipt Date: 20121010
  Transmission Date: 20130627
  Serious: Yes (Life-Threatening, Disabling, Other)
  Sender: FDA-Public Use
  Company Number: None

PATIENT
  Age: 69 Year
  Sex: Male
  Weight: 79.38 kg

DRUGS (1)
  1. METHYLPREDNISOLONE ACETATE [Suspect]
     Indication: BACK PAIN
     Route: 008
     Dates: start: 20120701, end: 20120730

REACTIONS (10)
  - Nausea [None]
  - Vomiting [None]
  - Headache [None]
  - Injection site rash [None]
  - Dizziness [None]
  - Injection site pain [None]
  - Cerebrovascular accident [None]
  - VIIth nerve paralysis [None]
  - Monoplegia [None]
  - Product contamination [None]
